FAERS Safety Report 11102205 (Version 1)
Quarter: 2015Q2

REPORT INFORMATION
  Report Type: Spontaneous
  Country: BR (occurrence: BR)
  Receive Date: 20150511
  Receipt Date: 20150511
  Transmission Date: 20150821
  Serious: Yes (Hospitalization, Other)
  Sender: FDA-Public Use
  Company Number: BR-009507513-1505BRA001945

PATIENT
  Age: 24 Year
  Sex: Female
  Weight: 64 kg

DRUGS (3)
  1. IMPLANON [Suspect]
     Active Substance: ETONOGESTREL
     Dosage: UNK
     Route: 030
     Dates: start: 20150222
  2. IMPLANON [Suspect]
     Active Substance: ETONOGESTREL
     Indication: CONTRACEPTION
     Dosage: UNK
     Route: 058
     Dates: start: 2005, end: 2008
  3. IMPLANON [Suspect]
     Active Substance: ETONOGESTREL
     Dosage: UNK
     Route: 030
     Dates: start: 2012

REACTIONS (9)
  - Device difficult to use [Recovered/Resolved]
  - Pain in extremity [Unknown]
  - Incorrect route of drug administration [Unknown]
  - Amenorrhoea [Not Recovered/Not Resolved]
  - Medical device complication [Unknown]
  - Device dislocation [Unknown]
  - Device deployment issue [Not Recovered/Not Resolved]
  - Device deployment issue [Not Recovered/Not Resolved]
  - Incorrect route of drug administration [Unknown]

NARRATIVE: CASE EVENT DATE: 2005
